FAERS Safety Report 6345354-4 (Version None)
Quarter: 2009Q3

REPORT INFORMATION
  Report Type: 
  Country: None (occurrence: None)
  Receive Date: 20090909
  Receipt Date: 20090828
  Transmission Date: 20100115
  Serious: Yes (Other)
  Sender: FDA-Public Use
  Company Number: US-BAYER-200923321NA

PATIENT
  Age: 43 Year
  Sex: Female
  Weight: 85 kg

DRUGS (10)
  1. YASMIN [Suspect]
     Indication: CONTRACEPTION
     Route: 048
     Dates: start: 20040101
  2. ASPIRIN [Concomitant]
     Route: 048
  3. LEXAPRO [Concomitant]
     Route: 048
  4. SINGULAIR [Concomitant]
     Route: 048
  5. METOPROLOL [Concomitant]
     Dosage: UNIT DOSE: 25 MG
     Route: 048
  6. VERAPAMIL [Concomitant]
     Route: 048
  7. TWISTHALER BREATH ACTIVATED [Concomitant]
     Dosage: ONE PUFF
  8. LOVAZA [Concomitant]
     Route: 048
  9. NITROGLYCERIN [Concomitant]
     Route: 060
  10. NAPROXEN [Concomitant]

REACTIONS (9)
  - ANXIETY [None]
  - ARRHYTHMIA [None]
  - CHEST PAIN [None]
  - CORONARY ARTERY DISEASE [None]
  - DYSPNOEA [None]
  - FATIGUE [None]
  - HYPOAESTHESIA [None]
  - INJURY [None]
  - PAIN [None]
